FAERS Safety Report 7401116-8 (Version None)
Quarter: 2011Q2

REPORT INFORMATION
  Report Type: 
  Country: None (occurrence: None)
  Receive Date: 20110407
  Receipt Date: 20110304
  Transmission Date: 20111010
  Serious: Yes (Hospitalization, Other)
  Sender: FDA-Public Use
  Company Number: US-BAYER-201040517NA

PATIENT
  Sex: Female
  Weight: 74.83 kg

DRUGS (9)
  1. YASMIN [Suspect]
     Indication: ORAL CONTRACEPTION
     Dosage: UNK
     Route: 048
     Dates: start: 20050101, end: 20080101
  2. BENADRYL CODEIN [Concomitant]
     Dosage: UNK
     Dates: start: 20081028, end: 20081104
  3. DILAUDID [Concomitant]
     Dosage: UNK
     Dates: start: 20081028, end: 20081104
  4. ZOFRAN [Concomitant]
     Dosage: UNK
     Dates: start: 20081028, end: 20081104
  5. FLEXERIL [Concomitant]
  6. UNCODEABLE ^UNCLASSIFIABLE^ [Concomitant]
  7. ZOLMITRIPTAN [Concomitant]
     Dosage: UNK
     Dates: start: 20080101
  8. VICODIN [Concomitant]
  9. YAZ [Suspect]
     Indication: ORAL CONTRACEPTION
     Dosage: UNK
     Route: 048
     Dates: start: 20050101, end: 20080101

REACTIONS (5)
  - SYNCOPE [None]
  - DIARRHOEA [None]
  - ABDOMINAL PAIN [None]
  - PANCREATITIS [None]
  - CHOLELITHIASIS [None]
